FAERS Safety Report 6167369-1 (Version None)
Quarter: 2009Q2

REPORT INFORMATION
  Report Type: 
  Country: None (occurrence: None)
  Receive Date: 20090424
  Receipt Date: 20090420
  Transmission Date: 20091009
  Serious: Yes (Other)
  Sender: FDA-Public Use
  Company Number: US-JNJFOC-20090405219

PATIENT
  Sex: Female

DRUGS (1)
  1. DURAGESIC-100 [Suspect]
     Indication: PAIN
     Route: 062

REACTIONS (8)
  - CONTUSION [None]
  - DIPLOPIA [None]
  - FRACTURE [None]
  - INJURY [None]
  - JOINT SPRAIN [None]
  - LACERATION [None]
  - RESPIRATORY ARREST [None]
  - VISION BLURRED [None]
